FAERS Safety Report 15424385 (Version 1)
Quarter: 2018Q3

REPORT INFORMATION
  Report Type: Spontaneous
  Country: US (occurrence: US)
  Receive Date: 20180918
  Receipt Date: 20180918
  Transmission Date: 20181010
  Serious: Yes (Hospitalization)
  Sender: FDA-Public Use
  Company Number: None

PATIENT
  Age: 52 Year
  Sex: Female

DRUGS (1)
  1. CABOMETYX [Suspect]
     Active Substance: CABOZANTINIB S-MALATE
     Indication: RENAL CANCER
     Route: 048
     Dates: start: 20180724

REACTIONS (5)
  - Fall [None]
  - Decreased appetite [None]
  - Thrombosis [None]
  - Fatigue [None]
  - Amnesia [None]

NARRATIVE: CASE EVENT DATE: 20180917
